FAERS Safety Report 24647998 (Version 3)
Quarter: 2024Q4

REPORT INFORMATION
  Report Type: Report from Study
  Country: RO (occurrence: RO)
  Receive Date: 20241121
  Receipt Date: 20241209
  Transmission Date: 20250115
  Serious: Yes (Hospitalization, Other)
  Sender: INCYTE
  Company Number: RO-002147023-NVSC2024RO060101

PATIENT

DRUGS (17)
  1. RUXOLITINIB [Suspect]
     Active Substance: RUXOLITINIB
     Indication: Primary myelofibrosis
     Dosage: 10 MG, 2/ZI
     Route: 048
     Dates: start: 20220929, end: 2023
  2. RUXOLITINIB [Suspect]
     Active Substance: RUXOLITINIB
     Indication: Bone cancer
     Dosage: 15 MG, BID
     Route: 048
     Dates: start: 2023, end: 20240101
  3. RUXOLITINIB [Suspect]
     Active Substance: RUXOLITINIB
     Dosage: 20 MG, BID
     Route: 048
     Dates: start: 202402, end: 20240401
  4. RUXOLITINIB [Suspect]
     Active Substance: RUXOLITINIB
     Dosage: 20 MG, BID
     Route: 048
     Dates: start: 20240410, end: 20240724
  5. RUXOLITINIB [Suspect]
     Active Substance: RUXOLITINIB
     Dosage: 20 MG, BID
     Route: 048
     Dates: start: 20241120
  6. BISOPROLOL FUMARATE [Concomitant]
     Active Substance: BISOPROLOL FUMARATE
     Indication: Hypertension
     Dosage: 5 MG, QD
     Route: 065
  7. DIOSMIN\HESPERIDIN [Concomitant]
     Active Substance: DIOSMIN\HESPERIDIN
     Indication: Varicose vein
     Dosage: 1000 MG, QD
     Route: 065
  8. ATORVASTATIN [Concomitant]
     Active Substance: ATORVASTATIN
     Indication: Blood cholesterol
     Dosage: UNK, QD
     Route: 065
  9. ASPIRIN [Concomitant]
     Active Substance: ASPIRIN
     Indication: Product used for unknown indication
     Dosage: UNK UNK, QD
     Route: 065
  10. VITAMIN B6 [Concomitant]
     Active Substance: PYRIDOXINE HYDROCHLORIDE
     Indication: Primary myelofibrosis
     Dosage: UNK
     Route: 065
  11. VITAMIN B6 [Concomitant]
     Active Substance: PYRIDOXINE HYDROCHLORIDE
     Indication: Bone cancer
  12. VITAMIN E [Concomitant]
     Active Substance: .ALPHA.-TOCOPHEROL
     Indication: Primary myelofibrosis
     Dosage: UNK
     Route: 065
  13. VITAMIN E [Concomitant]
     Active Substance: .ALPHA.-TOCOPHEROL
     Indication: Bone cancer
  14. FOLIC ACID [Concomitant]
     Active Substance: FOLIC ACID
     Indication: Primary myelofibrosis
     Dosage: UNK
     Route: 065
  15. FOLIC ACID [Concomitant]
     Active Substance: FOLIC ACID
     Indication: Bone cancer
  16. NOLIPREL [INDAPAMIDE;PERINDOPRIL ERBUMINE] [Concomitant]
     Indication: Hypertension
     Dosage: 5 MG, QD
     Route: 065
  17. BARAKA [Concomitant]
     Indication: Decreased immune responsiveness
     Dosage: UNK
     Route: 065

REACTIONS (19)
  - Pleural effusion [Recovered/Resolved]
  - Cat scratch disease [Unknown]
  - Haemoglobin decreased [Not Recovered/Not Resolved]
  - Intervertebral disc disorder [Recovering/Resolving]
  - Pyrexia [Recovered/Resolved]
  - Red blood cell sedimentation rate increased [Not Recovered/Not Resolved]
  - Mental disorder [Recovered/Resolved]
  - Platelet count increased [Recovered/Resolved]
  - Platelet count increased [Not Recovered/Not Resolved]
  - Pleurisy [Recovered/Resolved]
  - Pneumonia [Unknown]
  - Post herpetic neuralgia [Unknown]
  - Herpes zoster [Recovered/Resolved]
  - Hyperhidrosis [Recovered/Resolved]
  - Tracheobronchitis [Recovered/Resolved]
  - Varicella [Recovered/Resolved]
  - Measles [Recovered/Resolved]
  - Weight decreased [Recovered/Resolved]
  - Lymphadenitis [Recovered/Resolved]

NARRATIVE: CASE EVENT DATE: 20220101
